FAERS Safety Report 9680298 (Version 1)
Quarter: 2013Q4

REPORT INFORMATION
  Report Type: Spontaneous
  Country: FR (occurrence: FR)
  Receive Date: 20131111
  Receipt Date: 20131111
  Transmission Date: 20140711
  Serious: Yes (Hospitalization)
  Sender: FDA-Public Use
  Company Number: FR-BRISTOL-MYERS SQUIBB COMPANY-19753193

PATIENT
  Age: 86 Year
  Sex: Male
  Weight: 123 kg

DRUGS (12)
  1. ONGLYZA TABS 5 MG [Suspect]
     Indication: TYPE 2 DIABETES MELLITUS
     Route: 048
     Dates: end: 20130909
  2. GLIMEPIRIDE [Suspect]
     Indication: TYPE 2 DIABETES MELLITUS
     Route: 048
     Dates: end: 20130909
  3. NOVONORM [Suspect]
     Indication: TYPE 2 DIABETES MELLITUS
     Route: 048
     Dates: end: 20130909
  4. LANTUS [Suspect]
     Indication: TYPE 2 DIABETES MELLITUS
     Route: 058
  5. IMOVANE [Concomitant]
  6. EXELON [Concomitant]
     Dosage: EXELON PATCH,1DF: 1 UNIT NOS
  7. KARDEGIC [Concomitant]
  8. CRESTOR [Concomitant]
  9. TEMERIT [Concomitant]
     Route: 048
  10. LASILIX [Concomitant]
     Dosage: LASILIX SPECIAL 500 MG,1DF: 0.25 UNITS NOS,LASILIX 40 MG,1/D
     Route: 048
  11. ATACAND [Concomitant]
     Route: 048
  12. CHIBRO-PROSCAR [Concomitant]
     Route: 048

REACTIONS (2)
  - Hypoglycaemic coma [Recovered/Resolved]
  - Renal failure [Not Recovered/Not Resolved]
